FAERS Safety Report 8129357-5 (Version None)
Quarter: 2012Q1

REPORT INFORMATION
  Report Type: 
  Country: None (occurrence: None)
  Receive Date: 20120210
  Receipt Date: 20120207
  Transmission Date: 20120608
  Serious: Yes (Hospitalization)
  Sender: FDA-Public Use
  Company Number: FR-MERCK-1202FRA00046

PATIENT
  Age: 76 Year
  Sex: Male

DRUGS (7)
  1. DOXAZOSIN MESYLATE [Concomitant]
     Route: 048
  2. JANUMET [Suspect]
     Indication: TYPE 2 DIABETES MELLITUS
     Route: 048
     Dates: start: 20091201
  3. PRAVASTATIN SODIUM [Concomitant]
     Indication: DYSLIPIDAEMIA
     Route: 048
  4. INDAPAMIDE AND PERINDOPRIL ERBUMINE [Concomitant]
     Indication: HYPERTENSION
     Route: 048
  5. ASPIRIN LYSINE [Concomitant]
     Route: 048
  6. METFORMIN [Concomitant]
     Indication: TYPE 2 DIABETES MELLITUS
     Route: 048
  7. ESOMEPRAZOLE MAGNESIUM [Concomitant]
     Route: 048

REACTIONS (2)
  - WEIGHT DECREASED [None]
  - COLON CANCER METASTATIC [None]
